FAERS Safety Report 7933339-3 (Version None)
Quarter: 2011Q4

REPORT INFORMATION
  Report Type: 
  Country: None (occurrence: None)
  Receive Date: 20111122
  Receipt Date: 20111115
  Transmission Date: 20120403
  Serious: Yes (Hospitalization)
  Sender: FDA-Public Use
  Company Number: PHHY2011DK097473

PATIENT
  Sex: Male
  Weight: 67 kg

DRUGS (26)
  1. PREDNISOLONE [Suspect]
     Dosage: 100 MG, UNK
     Dates: start: 20110516
  2. PREDNISOLONE [Suspect]
     Dosage: 100 MG, UNK
     Dates: start: 20110604
  3. VINCRISTINE [Suspect]
     Dosage: 2 MG, UNK
     Route: 042
     Dates: start: 20110411
  4. CYCLOPHOSPHAMIDE [Suspect]
     Dosage: 1425 MG, UNK
     Route: 042
     Dates: start: 20110530
  5. NEUPOGEN [Suspect]
     Dosage: 6 MG, UNK
     Dates: start: 20110602
  6. DOXORUBICIN HCL [Suspect]
     Dosage: 93 MG, UNK
     Route: 042
     Dates: start: 20110411
  7. SULFAMETHOXAZOLE [Concomitant]
     Dosage: 400 MG, UNK
     Dates: start: 20110313
  8. SULFAMETHOXAZOLE [Concomitant]
     Dates: start: 20110517, end: 20110605
  9. RITUXIMAB [Suspect]
     Indication: DIFFUSE LARGE B-CELL LYMPHOMA
     Dosage: 700 MG, UNK
     Route: 042
     Dates: start: 20110311, end: 20110311
  10. CYCLOPHOSPHAMIDE [Suspect]
     Dosage: 1425 MG, UNK
     Route: 042
     Dates: start: 20110516
  11. NEUPOGEN [Suspect]
     Indication: DIFFUSE LARGE B-CELL LYMPHOMA
     Dosage: 6 MG, UNK
  12. DOXORUBICIN HCL [Suspect]
     Indication: DIFFUSE LARGE B-CELL LYMPHOMA
     Dosage: 95 MG, UNK
     Route: 042
     Dates: start: 20110311, end: 20110311
  13. NEUPOGEN [Suspect]
     Dosage: 6 MG, UNK
     Dates: start: 20110519
  14. DOXORUBICIN HCL [Suspect]
     Dosage: 93 MG, UNK
     Route: 042
     Dates: start: 20110516
  15. RITUXIMAB [Suspect]
     Dosage: 700 MG (3 EXTRA RITUXIMAB)
     Route: 042
     Dates: start: 20110418
  16. CYCLOPHOSPHAMIDE [Suspect]
     Dosage: 1425 MG, UNK
     Route: 042
     Dates: start: 20110411
  17. DOXORUBICIN HCL [Suspect]
     Dosage: 93 MG, UNK
     Route: 042
     Dates: start: 20110516, end: 20110530
  18. PREDNISOLONE [Suspect]
     Dosage: 100 MG, UNK
     Dates: start: 20110411
  19. RITUXIMAB [Suspect]
     Dosage: 700 MG, UNK
     Route: 042
     Dates: start: 20110516
  20. CYCLOPHOSPHAMIDE [Suspect]
     Indication: DIFFUSE LARGE B-CELL LYMPHOMA
     Dosage: 1425 MG, UNK
     Route: 042
     Dates: start: 20110311, end: 20110311
  21. PREDNISOLONE [Suspect]
     Indication: DIFFUSE LARGE B-CELL LYMPHOMA
     Dosage: 100 MG, UNK
     Route: 048
     Dates: start: 20110311, end: 20110314
  22. PREDNISONE TAB [Suspect]
     Route: 048
     Dates: start: 20110604
  23. VINCRISTINE [Suspect]
     Indication: DIFFUSE LARGE B-CELL LYMPHOMA
     Dosage: 20 MG, UNK
     Route: 042
     Dates: start: 20110311, end: 20110311
  24. RITUXIMAB [Suspect]
     Dosage: 700 MG, UNK
     Route: 042
     Dates: start: 20110411
  25. NEUPOGEN [Suspect]
     Dosage: 6 MG, UNK
     Dates: start: 20110414
  26. RITUXIMAB [Suspect]
     Dosage: 700 MG, UNK
     Route: 042
     Dates: start: 20110530

REACTIONS (9)
  - GASTRIC ULCER HAEMORRHAGE [None]
  - FAECES DISCOLOURED [None]
  - FUNGAL INFECTION [None]
  - ASTHENIA [None]
  - FEBRILE NEUTROPENIA [None]
  - GENERAL PHYSICAL HEALTH DETERIORATION [None]
  - GASTRIC ULCER [None]
  - PNEUMONIA [None]
  - DIARRHOEA [None]
